FAERS Safety Report 8083833-2 (Version None)
Quarter: 2012Q1

REPORT INFORMATION
  Report Type: 
  Country: None (occurrence: None)
  Receive Date: 20120128
  Receipt Date: 20110205
  Transmission Date: 20120608
  Serious: No
  Sender: FDA-Public Use
  Company Number: US-ABBOTT-11P-163-0703038-00

PATIENT
  Age: 21 Year
  Sex: Male

DRUGS (1)
  1. HUMIRA [Suspect]
     Indication: PITYRIASIS RUBRA PILARIS
     Dates: start: 20100901, end: 20110105

REACTIONS (12)
  - COUGH [None]
  - JOINT STIFFNESS [None]
  - DRUG INEFFECTIVE [None]
  - SKIN FISSURES [None]
  - PAIN IN EXTREMITY [None]
  - GAIT DISTURBANCE [None]
  - JOINT SWELLING [None]
  - NASOPHARYNGITIS [None]
  - RHINORRHOEA [None]
  - SKIN EXFOLIATION [None]
  - DRY SKIN [None]
  - ALOPECIA [None]
